FAERS Safety Report 13520728 (Version 1)
Quarter: 2017Q2

REPORT INFORMATION
  Report Type: Spontaneous
  Country: US (occurrence: US)
  Receive Date: 20170508
  Receipt Date: 20170508
  Transmission Date: 20170830
  Serious: No
  Sender: FDA-Public Use
  Company Number: US-TEVA-654586USA

PATIENT
  Sex: Female

DRUGS (1)
  1. ACYCLOVIR. [Suspect]
     Active Substance: ACYCLOVIR
     Indication: PROPHYLAXIS OF NAUSEA AND VOMITING
     Dates: start: 20160418

REACTIONS (4)
  - Nausea [Unknown]
  - Feeling abnormal [Unknown]
  - Eye irritation [Unknown]
  - Product use in unapproved indication [Unknown]
